FAERS Safety Report 4648591-X (Version None)
Quarter: 2005Q2

REPORT INFORMATION
  Report Type: 
  Country: None (occurrence: None)
  Receive Date: 20050427
  Receipt Date: 20050412
  Transmission Date: 20051028
  Serious: Yes (Hospitalization)
  Sender: FDA-Public Use
  Company Number: 213959

PATIENT
  Age: 60 Year
  Sex: Female

DRUGS (2)
  1. AVASTIN [Suspect]
     Indication: DRUG USE FOR UNKNOWN INDICATION
  2. IRINOTECAN HCL [Concomitant]

REACTIONS (2)
  - APPENDICITIS [None]
  - GASTROINTESTINAL INFECTION [None]
